FAERS Safety Report 7713845-7 (Version None)
Quarter: 2011Q3

REPORT INFORMATION
  Report Type: 
  Country: None (occurrence: None)
  Receive Date: 20110826
  Receipt Date: 20110823
  Transmission Date: 20111222
  Serious: Yes (Hospitalization, Other)
  Sender: FDA-Public Use
  Company Number: BR-ABBOTT-11P-020-0848891-00

PATIENT
  Sex: Female

DRUGS (5)
  1. CYCLOBENZAPRINE W/DICLOFENAC [Concomitant]
     Indication: RHEUMATOID ARTHRITIS
     Dosage: 40 MG + 100 MG
     Dates: start: 20110501
  2. ARAVA [Concomitant]
     Indication: RHEUMATOID ARTHRITIS
  3. HUMIRA [Suspect]
     Indication: RHEUMATOID ARTHRITIS
     Dates: start: 20110201
  4. LOSARTAN [Concomitant]
     Indication: BLOOD PRESSURE MANAGEMENT
  5. LOSARTAN [Concomitant]
     Indication: DRUG THERAPY

REACTIONS (10)
  - GAIT DISTURBANCE [None]
  - ERYSIPELAS [None]
  - BLISTER [None]
  - BURNING SENSATION [None]
  - PAIN IN EXTREMITY [None]
  - NAUSEA [None]
  - PYREXIA [None]
  - ERYTHEMA [None]
  - HEADACHE [None]
  - PEAU D'ORANGE [None]
